FAERS Safety Report 9795506 (Version 1)
Quarter: 2014Q1

REPORT INFORMATION
  Report Type: Spontaneous
  Country: US (occurrence: US)
  Receive Date: 20140103
  Receipt Date: 20140103
  Transmission Date: 20141002
  Serious: Yes (Other)
  Sender: FDA-Public Use
  Company Number: US-BAYER-2014-000641

PATIENT
  Age: 22 Year
  Sex: Female
  Weight: 118.82 kg

DRUGS (10)
  1. YAZ [Suspect]
  2. YASMIN [Suspect]
  3. OCELLA [Suspect]
  4. GIANVI [Suspect]
  5. LISINOPRIL [Concomitant]
     Dosage: 5 MG, UNK
  6. ORPHENADRIN [Concomitant]
     Dosage: 100 MG, UNK
  7. SIMVASTATIN [Concomitant]
     Dosage: 10 MG, UNK
  8. ATORVASTATIN [Concomitant]
     Dosage: 10 MG, UNK
  9. LIPITOR [Concomitant]
  10. METFORMIN [Concomitant]
     Dosage: 500 MG, UNK

REACTIONS (1)
  - Deep vein thrombosis [None]
